FAERS Safety Report 8819543 (Version 2)
Quarter: 2013Q4

REPORT INFORMATION
  Report Type: Spontaneous
  Country: IE (occurrence: IE)
  Receive Date: 20120930
  Receipt Date: 20131015
  Transmission Date: 20140711
  Serious: Yes (Death)
  Sender: FDA-Public Use
  Company Number: IE-ELI_LILLY_AND_COMPANY-IE201209004252

PATIENT
  Sex: Female

DRUGS (6)
  1. CYMBALTA [Suspect]
     Indication: DEPRESSION
     Dosage: 60MG, DAILY
     Route: 048
     Dates: start: 201110
  2. CYMBALTA [Suspect]
     Indication: ANXIETY
  3. OLANZAPINE [Concomitant]
     Indication: PRODUCT USED FOR UNKNOWN INDICATION
     Dosage: 2.5MG, QAM
  4. OLANZAPINE [Concomitant]
     Dosage: 7.5MG QPM
  5. ZOPICLONE [Concomitant]
     Indication: PRODUCT USED FOR UNKNOWN INDICATION
     Dosage: 2.5MG QPM
  6. ALPRAZOLAM [Concomitant]
     Indication: PRODUCT USED FOR UNKNOWN INDICATION
     Dosage: 250UG/BID

REACTIONS (2)
  - Completed suicide [Fatal]
  - Antidepressant drug level increased [Not Recovered/Not Resolved]
